FAERS Safety Report 7439362-X (Version None)
Quarter: 2011Q2

REPORT INFORMATION
  Report Type: 
  Country: None (occurrence: None)
  Receive Date: 20110427
  Receipt Date: 20110418
  Transmission Date: 20111010
  Serious: Yes (Hospitalization, Other)
  Sender: FDA-Public Use
  Company Number: US-ASTRAZENECA-2009UW03114

PATIENT
  Age: 18642 Day
  Sex: Female
  Weight: 113.4 kg

DRUGS (7)
  1. SEROQUEL [Suspect]
     Indication: BIPOLAR DISORDER
     Dosage: 25-75 MG TID
     Route: 048
     Dates: start: 20050801, end: 20061101
  2. ANAFRANIL [Concomitant]
     Dosage: 50 MG X4 DLY
     Dates: start: 19910101
  3. ABILIFY [Concomitant]
     Dates: start: 19910101
  4. SEROQUEL [Suspect]
     Indication: PARANOIA
     Dosage: 25-75 MG TID
     Route: 048
     Dates: start: 20050801, end: 20061101
  5. SEROQUEL [Suspect]
     Indication: DEPRESSION
     Dosage: 25-75 MG TID
     Route: 048
     Dates: start: 20050801, end: 20061101
  6. ZYPREXA [Concomitant]
     Dosage: 5 - 7.5 MG
     Dates: start: 19970101, end: 20070101
  7. SEROQUEL [Suspect]
     Indication: SCHIZOPHRENIA
     Dosage: 25-75 MG TID
     Route: 048
     Dates: start: 20050801, end: 20061101

REACTIONS (5)
  - PANCREATITIS [None]
  - LUNG DISORDER [None]
  - GALLBLADDER DISORDER [None]
  - PANCREATITIS ACUTE [None]
  - DIABETES MELLITUS [None]
